FAERS Safety Report 25764415 (Version 1)
Quarter: 2025Q3

REPORT INFORMATION
  Report Type: Spontaneous
  Country: US (occurrence: US)
  Receive Date: 20250905
  Receipt Date: 20250905
  Transmission Date: 20251020
  Serious: No
  Sender: DOMPE FARMACEUTICI
  Company Number: US-FARMAPROD-202501-0091

PATIENT
  Sex: Female
  Weight: 45.31 kg

DRUGS (17)
  1. OXERVATE [Suspect]
     Active Substance: CENEGERMIN-BKBJ
     Indication: Neurotrophic keratopathy
     Route: 047
     Dates: start: 20241230
  2. MEMANTINE [Concomitant]
     Active Substance: MEMANTINE
  3. ACETAMINOPHEN [Concomitant]
     Active Substance: ACETAMINOPHEN
  4. AZELASTINE HYDROCHLORIDE [Concomitant]
     Active Substance: AZELASTINE HYDROCHLORIDE
  5. MIRTAZAPINE [Concomitant]
     Active Substance: MIRTAZAPINE
  6. QUETIAPINE FUMARATE [Concomitant]
     Active Substance: QUETIAPINE FUMARATE
  7. FLUOCINONIDE [Concomitant]
     Active Substance: FLUOCINONIDE
  8. PYRIDOXINE [Concomitant]
     Active Substance: PYRIDOXINE
  9. LUMIGAN [Concomitant]
     Active Substance: BIMATOPROST
  10. BRINZOLAMIDE [Concomitant]
     Active Substance: BRINZOLAMIDE
  11. FLUTICASONE PROPIONATE [Concomitant]
     Active Substance: FLUTICASONE PROPIONATE
  12. ACETAMINOPHEN [Concomitant]
     Active Substance: ACETAMINOPHEN
  13. KETOCONAZOLE [Concomitant]
     Active Substance: KETOCONAZOLE
  14. BUPROPION [Concomitant]
     Active Substance: BUPROPION
  15. BUSPIRONE HCL [Concomitant]
     Active Substance: BUSPIRONE HYDROCHLORIDE
  16. VITAMIN B COMPLEX [Concomitant]
     Active Substance: CYANOCOBALAMIN\DEXPANTHENOL\NIACINAMIDE\PYRIDOXINE HYDROCHLORIDE\RIBOFLAVIN 5^-PHOSPHATE SODIUM\THIA
  17. ZINC 15 [Concomitant]

REACTIONS (2)
  - Eye pain [Unknown]
  - Eye discharge [Unknown]
